FAERS Safety Report 17718304 (Version 4)
Quarter: 2021Q1

REPORT INFORMATION
  Report Type: Report from Study
  Country: GB (occurrence: GB)
  Receive Date: 20200428
  Receipt Date: 20210326
  Transmission Date: 20210419
  Serious: Yes (Hospitalization)
  Sender: FDA-Public Use
  Company Number: GB-BAUSCH-BL-2020-012352

PATIENT
  Age: 84 Year
  Sex: Female

DRUGS (1)
  1. KYNTHEUM (BRODALUMAB) [Suspect]
     Active Substance: BRODALUMAB
     Indication: PSORIASIS
     Dosage: 210MG WEEK 0, 1, 2 THEN EVERY TWO WEEKS
     Route: 058
     Dates: start: 201909

REACTIONS (2)
  - Therapy interrupted [Unknown]
  - Hospitalisation [Recovered/Resolved]

NARRATIVE: CASE EVENT DATE: 202002
